FAERS Safety Report 9233669 (Version 2)
Quarter: 2013Q4

REPORT INFORMATION
  Report Type: Spontaneous
  Country: US (occurrence: US)
  Receive Date: 20130416
  Receipt Date: 20131022
  Transmission Date: 20140711
  Serious: Yes (Hospitalization, Other)
  Sender: FDA-Public Use
  Company Number: US-BAYER-2013-043945

PATIENT
  Age: 22 Year
  Sex: Female
  Weight: 49.89 kg

DRUGS (5)
  1. MIRENA [Suspect]
     Indication: CONTRACEPTION
     Dosage: 20 MCG/24HR, CONT
     Route: 015
     Dates: start: 20080618, end: 20100415
  2. FLAGYL [Concomitant]
  3. ZOSYN [Concomitant]
  4. GENTAMICIN [Concomitant]
  5. AZITHROMYCIN [Concomitant]

REACTIONS (31)
  - Uterine perforation [None]
  - Abdominal pain lower [None]
  - Pelvic pain [None]
  - Pain [None]
  - Urinary tract infection [None]
  - Abdominal pain [None]
  - Pelvic abscess [None]
  - Abdominal infection [None]
  - Tubo-ovarian abscess [None]
  - Salpingitis [None]
  - Uterine infection [None]
  - Oophoritis [None]
  - Appendicectomy [None]
  - Septic shock [None]
  - Multi-organ failure [None]
  - Respiratory failure [None]
  - Cardiovascular insufficiency [None]
  - Coagulopathy [None]
  - Pleural effusion [None]
  - Abdominal abscess [None]
  - Artificial menopause [None]
  - Hot flush [None]
  - Night sweats [None]
  - Vulvovaginal dryness [None]
  - Emotional distress [None]
  - Anxiety [None]
  - Device dislocation [None]
  - Infertility female [None]
  - Vaginal haemorrhage [None]
  - Genital haemorrhage [None]
  - Device issue [None]
